FAERS Safety Report 20392943 (Version 1)
Quarter: 2022Q1

REPORT INFORMATION
  Report Type: Spontaneous
  Country: US (occurrence: None)
  Receive Date: 20220128
  Receipt Date: 20220128
  Transmission Date: 20220423
  Serious: Yes (Other)
  Sender: FDA-Public Use
  Company Number: None

PATIENT
  Age: 50 Year
  Sex: Female
  Weight: 74.25 kg

DRUGS (1)
  1. BACLOFEN [Suspect]
     Active Substance: BACLOFEN
     Indication: Muscle spasms
     Dosage: FREQUENCY : DAILY;?
     Route: 048
     Dates: start: 20130420, end: 20130722

REACTIONS (5)
  - Anger [None]
  - Alopecia [None]
  - Homicidal ideation [None]
  - Hostility [None]
  - Aggression [None]

NARRATIVE: CASE EVENT DATE: 20130722
